FAERS Safety Report 9926241 (Version 1)
Quarter: 2014Q1

REPORT INFORMATION
  Report Type: Spontaneous
  Country: RS (occurrence: RS)
  Receive Date: 20140226
  Receipt Date: 20140226
  Transmission Date: 20141002
  Serious: Yes (Hospitalization, Other)
  Sender: FDA-Public Use
  Company Number: RS-BAXTER-2014BAX008556

PATIENT
  Age: 66 Year
  Sex: Male

DRUGS (14)
  1. ENDOXAN 1 G [Suspect]
     Indication: SJOGREN^S SYNDROME
     Route: 065
  2. ENDOXAN 1 G [Suspect]
     Indication: SYSTEMIC SCLEROSIS
  3. PREDNISOLONE [Suspect]
     Indication: SYSTEMIC SCLEROSIS
     Route: 065
  4. PREDNISOLONE [Suspect]
     Indication: SJOGREN^S SYNDROME
  5. PANTOPRAZOLE [Suspect]
     Indication: SYSTEMIC SCLEROSIS
     Route: 065
  6. PANTOPRAZOLE [Suspect]
     Indication: SJOGREN^S SYNDROME
  7. NIFEDIPINE [Suspect]
     Indication: SYSTEMIC SCLEROSIS
     Route: 065
  8. NIFEDIPINE [Suspect]
     Indication: SJOGREN^S SYNDROME
  9. RANITIDINE [Suspect]
     Indication: SYSTEMIC SCLEROSIS
     Route: 065
  10. RANITIDINE [Suspect]
     Indication: SJOGREN^S SYNDROME
  11. ALPHATOCOPHEROL [Suspect]
     Indication: SYSTEMIC SCLEROSIS
     Dosage: 800 IJ
     Route: 065
  12. ALPHATOCOPHEROL [Suspect]
     Indication: SJOGREN^S SYNDROME
  13. ASCORBIC ACID [Suspect]
     Indication: SYSTEMIC SCLEROSIS
     Route: 065
  14. ASCORBIC ACID [Suspect]
     Indication: SJOGREN^S SYNDROME

REACTIONS (2)
  - Vasculitis [Recovered/Resolved]
  - Drug ineffective [Unknown]
